FAERS Safety Report 17984872 (Version 1)
Quarter: 2020Q3

REPORT INFORMATION
  Report Type: Spontaneous
  Country: US (occurrence: US)
  Receive Date: 20200706
  Receipt Date: 20200706
  Transmission Date: 20201103
  Serious: Yes (Death)
  Sender: FDA-Public Use
  Company Number: US-PFIZER INC-2020257101

PATIENT
  Age: 63 Year
  Sex: Male

DRUGS (19)
  1. RIFAMPIN. [Suspect]
     Active Substance: RIFAMPIN
     Indication: DISSEMINATED MYCOBACTERIUM AVIUM COMPLEX INFECTION
     Dosage: 6 MG, DAILY (DAY 1)
     Route: 048
  2. RIFAMPIN. [Suspect]
     Active Substance: RIFAMPIN
     Dosage: 48 MG, DAILY (DAY 4)
     Route: 048
  3. RIFAMPIN. [Suspect]
     Active Substance: RIFAMPIN
     Dosage: 192 MG, DAILY (DAY 6)
     Route: 048
  4. AZITHROMYCIN ANHYDROUS. [Suspect]
     Active Substance: AZITHROMYCIN ANHYDROUS
     Indication: DISSEMINATED MYCOBACTERIUM AVIUM COMPLEX INFECTION
     Dosage: 500 MG, DAILY
  5. RIFAMPIN. [Suspect]
     Active Substance: RIFAMPIN
     Dosage: 96 MG, DAILY (DAY 5)
     Route: 048
  6. RIFAMPIN. [Suspect]
     Active Substance: RIFAMPIN
     Dosage: 600 MG, DAILY (DAY 7)
     Route: 048
  7. ETHAMBUTOL [Suspect]
     Active Substance: ETHAMBUTOL HYDROCHLORIDE
     Dosage: 1600 MG, DAILY (RESTART)
  8. MYCOPHENOLATE SODIUM [Concomitant]
     Active Substance: MYCOPHENOLATE SODIUM
     Indication: IMMUNOSUPPRESSION
     Dosage: UNK
  9. RIFABUTIN. [Suspect]
     Active Substance: RIFABUTIN
     Indication: DISSEMINATED MYCOBACTERIUM AVIUM COMPLEX INFECTION
     Dosage: 300 MG, DAILY
  10. ACYCLOVIR [ACICLOVIR] [Concomitant]
     Active Substance: ACYCLOVIR
     Indication: ORAL HERPES
     Dosage: UNK
  11. ACYCLOVIR [ACICLOVIR] [Concomitant]
     Active Substance: ACYCLOVIR
     Indication: OESOPHAGITIS
  12. CYCLOSPORINE. [Concomitant]
     Active Substance: CYCLOSPORINE
     Indication: IMMUNOSUPPRESSION
     Dosage: UNK
  13. PREDNISONE. [Concomitant]
     Active Substance: PREDNISONE
     Indication: IMMUNOSUPPRESSION
     Dosage: 10 MG, DAILY
  14. RIFAMPIN. [Suspect]
     Active Substance: RIFAMPIN
     Dosage: 300 MG, DAILY (DAY 7)
     Route: 048
  15. VALACYCLOVIR [Suspect]
     Active Substance: VALACYCLOVIR HYDROCHLORIDE
     Indication: PROPHYLAXIS
     Dosage: UNK
  16. RIFAMPIN. [Suspect]
     Active Substance: RIFAMPIN
     Dosage: 12 MG, DAILY (DAY 2)
     Route: 048
  17. RIFAMPIN. [Suspect]
     Active Substance: RIFAMPIN
     Dosage: 24 MG, DAILY (DAY 3)
     Route: 048
  18. VALACYCLOVIR [Suspect]
     Active Substance: VALACYCLOVIR HYDROCHLORIDE
     Indication: DISSEMINATED MYCOBACTERIUM AVIUM COMPLEX INFECTION
     Dosage: UNK (RESTART)
  19. ETHAMBUTOL [Suspect]
     Active Substance: ETHAMBUTOL HYDROCHLORIDE
     Indication: DISSEMINATED MYCOBACTERIUM AVIUM COMPLEX INFECTION
     Dosage: 1600 MG, DAILY

REACTIONS (1)
  - Drug ineffective [Fatal]
